FAERS Safety Report 23281632 (Version 2)
Quarter: 2023Q4

REPORT INFORMATION
  Report Type: Spontaneous
  Country: US (occurrence: None)
  Receive Date: 20231211
  Receipt Date: 20231218
  Transmission Date: 20240110
  Serious: Yes (Death)
  Sender: FDA-Public Use
  Company Number: US-ROCHE-3471935

PATIENT
  Age: 22 Year
  Sex: Female
  Weight: 60.836 kg

DRUGS (1)
  1. TNKASE [Suspect]
     Active Substance: TENECTEPLASE
     Indication: Pulmonary embolism
     Route: 065
     Dates: start: 20230629

REACTIONS (5)
  - Swelling [Fatal]
  - Haemorrhage [Fatal]
  - Off label use [Fatal]
  - Haemorrhage [Unknown]
  - Dose calculation error [Unknown]

NARRATIVE: CASE EVENT DATE: 20230629
